FAERS Safety Report 9222889 (Version 2)
Quarter: 2013Q2

REPORT INFORMATION
  Report Type: Report from Study
  Country: US (occurrence: US)
  Receive Date: 20130410
  Receipt Date: 20130521
  Transmission Date: 20140414
  Serious: Yes (Death, Other)
  Sender: FDA-Public Use
  Company Number: US-ROCHE-1210025

PATIENT
  Age: 46 Year
  Sex: Female

DRUGS (2)
  1. ALTEPLASE [Suspect]
     Indication: ISCHAEMIC STROKE
     Dosage: 0.9 MG/KG, WITH 10 % OF THE TOTAL DOSE GIVEN IN 1 MINUTE AND THE REMAINDER INFUSED ACROSS 60 MINUTES
     Route: 042
  2. ARGATROBAN [Suspect]
     Indication: ISCHAEMIC STROKE
     Dosage: 100 MCG/KG BOLUS IN 3 TO 5 MINUTES; FOLLOWED BY CONTINUOUS INFUSION OF 1 MCG/KG PER MIN FOR 48 HOURS
     Route: 042

REACTIONS (2)
  - Brain oedema [Fatal]
  - Drug effect decreased [Unknown]
